FAERS Safety Report 12663569 (Version 2)
Quarter: 2016Q4

REPORT INFORMATION
  Report Type: Spontaneous
  Country: FR (occurrence: FR)
  Receive Date: 20160818
  Receipt Date: 20161020
  Transmission Date: 20170207
  Serious: Yes (Hospitalization)
  Sender: FDA-Public Use
  Company Number: FR-ASTRAZENECA-2016SE87271

PATIENT
  Age: 771 Month
  Sex: Female

DRUGS (7)
  1. BRICANYL [Suspect]
     Active Substance: TERBUTALINE SULFATE
     Indication: ASTHMA
     Dosage: AS REQUIRED
     Route: 055
  2. IMUREL [Suspect]
     Active Substance: AZATHIOPRINE SODIUM
     Indication: MUSCULAR WEAKNESS
     Route: 048
     Dates: start: 20160806
  3. PULMICORT TURBUHALER [Suspect]
     Active Substance: BUDESONIDE
     Indication: ASTHMA
     Route: 055
  4. ZINNAT [Suspect]
     Active Substance: CEFUROXIME AXETIL
     Indication: BRONCHITIS
     Route: 048
     Dates: start: 20160725, end: 20160731
  5. MESTINON [Suspect]
     Active Substance: PYRIDOSTIGMINE BROMIDE
     Indication: MUSCULAR WEAKNESS
     Route: 048
     Dates: start: 2008
  6. IMUREL [Suspect]
     Active Substance: AZATHIOPRINE SODIUM
     Indication: MUSCULAR WEAKNESS
     Route: 048
     Dates: start: 2008, end: 20160803
  7. PREDNISONE. [Suspect]
     Active Substance: PREDNISONE
     Indication: PRODUCT USED FOR UNKNOWN INDICATION
     Route: 048

REACTIONS (2)
  - Escherichia urinary tract infection [Unknown]
  - Pancreatitis acute [Recovered/Resolved]

NARRATIVE: CASE EVENT DATE: 201608
